FAERS Safety Report 8071526-7 (Version None)
Quarter: 2012Q1

REPORT INFORMATION
  Report Type: 
  Country: None (occurrence: None)
  Receive Date: 20120125
  Receipt Date: 20120123
  Transmission Date: 20120608
  Serious: Yes (Other)
  Sender: FDA-Public Use
  Company Number: US-ABBOTT-12P-163-0894792-00

PATIENT
  Age: 40 Year
  Sex: Female

DRUGS (2)
  1. KALETRA [Suspect]
     Indication: PRODUCT USED FOR UNKNOWN INDICATION
     Route: 048
     Dates: start: 20080306
  2. EPZICOM [Suspect]
     Indication: PRODUCT USED FOR UNKNOWN INDICATION
     Route: 048
     Dates: start: 20061214

REACTIONS (6)
  - C-REACTIVE PROTEIN INCREASED [None]
  - INFECTION [None]
  - ABORTION INDUCED [None]
  - FIBROMA [None]
  - AMNIORRHOEA [None]
  - UTERINE LEIOMYOMA [None]
